FAERS Safety Report 5932512-3 (Version None)
Quarter: 2008Q4

REPORT INFORMATION
  Report Type: 
  Country: None (occurrence: None)
  Receive Date: 20081028
  Receipt Date: 20081017
  Transmission Date: 20090506
  Serious: Yes (Hospitalization)
  Sender: FDA-Public Use
  Company Number: US-JNJFOC-20081005151

PATIENT
  Sex: Male

DRUGS (8)
  1. INFLIXIMAB [Suspect]
     Route: 042
  2. INFLIXIMAB [Suspect]
     Indication: INFLAMMATORY BOWEL DISEASE
     Route: 042
  3. IRON SULFATETHIAMIN COMPOUND TAB [Concomitant]
  4. 5-ASA [Concomitant]
     Indication: INFLAMMATORY BOWEL DISEASE
     Route: 048
  5. AZATHIOPRINE [Concomitant]
     Indication: INFLAMMATORY BOWEL DISEASE
  6. PRILOSEC [Concomitant]
  7. ALBUTEROL [Concomitant]
     Route: 055
  8. FLAGYL [Concomitant]
     Indication: INFLAMMATORY BOWEL DISEASE

REACTIONS (1)
  - INTESTINAL STENOSIS [None]
